FAERS Safety Report 6689844-3 (Version None)
Quarter: 2010Q2

REPORT INFORMATION
  Report Type: 
  Country: None (occurrence: None)
  Receive Date: 20100412
  Receipt Date: 20100225
  Transmission Date: 20101027
  Serious: No
  Sender: FDA-Public Use
  Company Number: 1000012043

PATIENT
  Age: 75 Year
  Sex: Female

DRUGS (12)
  1. BYSTOLIC [Suspect]
     Indication: HYPERTENSION
     Dosage: 5 MG (5 MG, 1 IN 1 D), ORAL
     Route: 048
     Dates: start: 20100101, end: 20100101
  2. BYSTOLIC [Suspect]
     Indication: HYPERTENSION
     Dosage: 10 MG (10 MG, 1 IN 1 D), ORAL
     Route: 048
     Dates: start: 20100101, end: 20100221
  3. HYZAAR [Concomitant]
  4. LIPITOR [Concomitant]
  5. OGEN [Concomitant]
  6. NIACIN [Concomitant]
  7. ASPIRIN [Concomitant]
  8. FISH OIL [Concomitant]
  9. MULTI-VITAMINS [Concomitant]
  10. CALMAG [Concomitant]
  11. COQ-10 [Concomitant]
  12. PROBIOTICS [Concomitant]

REACTIONS (2)
  - LIP SWELLING [None]
  - OEDEMA MOUTH [None]
